FAERS Safety Report 8651411 (Version 3)
Quarter: 2013Q2

REPORT INFORMATION
  Report Type: Report from Study
  Country: DE (occurrence: DE)
  Receive Date: 20120706
  Receipt Date: 20130426
  Transmission Date: 20140414
  Serious: Yes (Hospitalization)
  Sender: FDA-Public Use
  Company Number: DE-BIOGENIDEC-2012BI023599

PATIENT
  Age: 34 Year
  Sex: Male

DRUGS (2)
  1. TYSABRI [Suspect]
     Indication: RELAPSING-REMITTING MULTIPLE SCLEROSIS
     Route: 042
     Dates: start: 20090806, end: 20120529
  2. FAMPYRA [Concomitant]
     Indication: MULTIPLE SCLEROSIS

REACTIONS (1)
  - Femoral neck fracture [Recovered/Resolved with Sequelae]
